FAERS Safety Report 8270693-X (Version None)
Quarter: 2012Q2

REPORT INFORMATION
  Report Type: 
  Country: None (occurrence: None)
  Receive Date: 20120410
  Receipt Date: 20120403
  Transmission Date: 20120825
  Serious: Yes (Death)
  Sender: FDA-Public Use
  Company Number: US-ELI_LILLY_AND_COMPANY-US201203001200

PATIENT
  Sex: Male

DRUGS (6)
  1. VITAMIN B-12 [Concomitant]
     Dosage: 1000 UG, UNK
     Route: 058
     Dates: start: 20111110
  2. AVASTIN [Concomitant]
  3. CORTICOSTEROID NOS [Concomitant]
     Dosage: 4 MG, BID
     Route: 048
     Dates: start: 20111121
  4. ALIMTA [Suspect]
     Indication: LUNG NEOPLASM MALIGNANT
     Dosage: UNK
     Dates: start: 20111122, end: 20120103
  5. CARBOPLATIN [Concomitant]
  6. FOLIC ACID [Concomitant]
     Dosage: 1 MG, UNK
     Route: 048
     Dates: start: 20111108

REACTIONS (1)
  - NEOPLASM PROGRESSION [None]
